FAERS Safety Report 13902919 (Version 3)
Quarter: 2018Q1

REPORT INFORMATION
  Report Type: Report from Study
  Country: GB (occurrence: GB)
  Receive Date: 20170824
  Receipt Date: 20180308
  Transmission Date: 20180508
  Serious: Yes (Hospitalization, Other)
  Sender: FDA-Public Use
  Company Number: GB-AMGEN-GBRSL2017126843

PATIENT
  Age: 78 Year
  Sex: Female

DRUGS (2)
  1. ARANESP [Suspect]
     Active Substance: DARBEPOETIN ALFA
     Dosage: 30 MUG, UNK
     Route: 065
  2. ARANESP [Suspect]
     Active Substance: DARBEPOETIN ALFA
     Indication: PRODUCT USED FOR UNKNOWN INDICATION
     Dosage: 50 MUG, UNK
     Route: 065

REACTIONS (10)
  - Oedema [Unknown]
  - Plasma cell myeloma [Unknown]
  - Rash macular [Unknown]
  - Pneumonia [Unknown]
  - Pyrexia [Unknown]
  - Skin exfoliation [Unknown]
  - Pericardial effusion [Unknown]
  - Peripheral swelling [Unknown]
  - Abdominal distension [Unknown]
  - Erythema [Unknown]

NARRATIVE: CASE EVENT DATE: 2017
